FAERS Safety Report 10796331 (Version 9)
Quarter: 2016Q1

REPORT INFORMATION
  Report Type: Spontaneous
  Country: CA (occurrence: CA)
  Receive Date: 20150216
  Receipt Date: 20160311
  Transmission Date: 20160525
  Serious: Yes (Life-Threatening, Hospitalization, Other)
  Sender: FDA-Public Use
  Company Number: CA-ROCHE-1538458

PATIENT
  Age: 65 Year
  Sex: Female

DRUGS (6)
  1. ARAVA [Suspect]
     Active Substance: LEFLUNOMIDE
     Indication: RHEUMATOID ARTHRITIS
     Route: 065
  2. METHOTREXATE SODIUM. [Suspect]
     Active Substance: METHOTREXATE SODIUM
     Indication: RHEUMATOID ARTHRITIS
     Route: 058
  3. ACTEMRA [Suspect]
     Active Substance: TOCILIZUMAB
     Indication: RHEUMATOID ARTHRITIS
     Route: 065
  4. PLAQUINOL [Suspect]
     Active Substance: HYDROXYCHLOROQUINE SULFATE
     Indication: RHEUMATOID ARTHRITIS
     Route: 065
  5. PREDNISONE. [Concomitant]
     Active Substance: PREDNISONE
  6. METHOTREXATE [Concomitant]
     Active Substance: METHOTREXATE
     Dosage: SINCE RHEUMATOID ARTHIRITIS DIAGNOSIS
     Route: 065
     Dates: start: 1990

REACTIONS (11)
  - Diarrhoea [Unknown]
  - Localised infection [Not Recovered/Not Resolved]
  - Pneumonia [Unknown]
  - Postoperative wound infection [Unknown]
  - Impaired healing [Unknown]
  - Osteomyelitis [Recovering/Resolving]
  - Ill-defined disorder [Unknown]
  - Malaise [Unknown]
  - Clostridium difficile infection [Unknown]
  - Pleurisy [Unknown]
  - Arthralgia [Unknown]
